FAERS Safety Report 9059627 (Version 1)
Quarter: 2013Q1

REPORT INFORMATION
  Report Type: Spontaneous
  Country: US (occurrence: None)
  Receive Date: 20130206
  Receipt Date: 20130206
  Transmission Date: 20140127
  Serious: Yes (Other)
  Sender: FDA-Public Use
  Company Number: None

PATIENT
  Sex: Female

DRUGS (5)
  1. VICODIN [Suspect]
     Indication: PRODUCT USED FOR UNKNOWN INDICATION
  2. ULTRAM [Suspect]
  3. PERCOCET [Suspect]
  4. DECADRON [Suspect]
  5. TYLENOL #3 [Suspect]

REACTIONS (2)
  - Urticaria [None]
  - Pruritus [None]
